FAERS Safety Report 9040992 (Version 1)
Quarter: 2013Q1

REPORT INFORMATION
  Report Type: Spontaneous
  Country: US (occurrence: None)
  Receive Date: 20130123
  Receipt Date: 20130123
  Transmission Date: 20140127
  Serious: No
  Sender: FDA-Public Use
  Company Number: None

PATIENT
  Age: 60 Year
  Sex: Male
  Weight: 90.72 kg

DRUGS (1)
  1. TRAMADOL HCL 50 MG TAB [Suspect]
     Indication: BACK DISORDER
     Dosage: 1 TAB EVERY 6 HOURS  4 TIMES IN 24 HRS?12-17-13 ABOUT 3 OR 4 DAYS

REACTIONS (4)
  - Dizziness [None]
  - Pruritus [None]
  - Erythema [None]
  - Dyspnoea [None]
